FAERS Safety Report 14487567 (Version 3)
Quarter: 2018Q2

REPORT INFORMATION
  Report Type: Report from Study
  Country: US (occurrence: US)
  Receive Date: 20180205
  Receipt Date: 20180507
  Transmission Date: 20180711
  Serious: Yes (Hospitalization)
  Sender: FDA-Public Use
  Company Number: US-JNJFOC-20171230621

PATIENT
  Age: 86 Year
  Sex: Male

DRUGS (3)
  1. IMBRUVICA [Suspect]
     Active Substance: IBRUTINIB
     Indication: WALDENSTROM^S MACROGLOBULINAEMIA
     Dosage: 420 MG, QD
     Route: 048
     Dates: start: 20171019, end: 2018
  2. IMBRUVICA [Suspect]
     Active Substance: IBRUTINIB
     Indication: WALDENSTROM^S MACROGLOBULINAEMIA
     Route: 048
     Dates: start: 20171020, end: 20180116
  3. ASPIRIN. [Concomitant]
     Active Substance: ASPIRIN

REACTIONS (14)
  - Toothache [Unknown]
  - Protein total decreased [Unknown]
  - Lip swelling [Unknown]
  - Nasopharyngitis [Unknown]
  - Dysarthria [Unknown]
  - Oral discomfort [Unknown]
  - Post procedural sepsis [Unknown]
  - Fatigue [Unknown]
  - Post procedural infection [Unknown]
  - Stomatitis [Unknown]
  - Colostomy [Unknown]
  - Endodontic procedure [Unknown]
  - Lip erythema [Unknown]
  - Paraesthesia oral [Unknown]

NARRATIVE: CASE EVENT DATE: 201801
